FAERS Safety Report 4409926-6 (Version None)
Quarter: 2004Q3

REPORT INFORMATION
  Report Type: 
  Country: None (occurrence: None)
  Receive Date: 20040728
  Receipt Date: 20040705
  Transmission Date: 20050211
  Serious: Yes (Hospitalization)
  Sender: FDA-Public Use
  Company Number: JP-GLAXOSMITHKLINE-B0338379A

PATIENT
  Age: 2 Year
  Sex: Female
  Weight: 10.4 kg

DRUGS (6)
  1. ALKERAN [Suspect]
     Indication: BONE MARROW CONDITIONING REGIMEN
     Dosage: 300MGM2 CYCLIC
     Route: 042
     Dates: start: 19930201, end: 19930208
  2. THIOTEPA [Suspect]
     Indication: STEM CELL TRANSPLANT
     Dosage: 1000MGM2 CYCLIC
     Route: 065
     Dates: start: 19930201, end: 19930209
  3. FLUMARIN [Concomitant]
     Indication: INFECTION
     Route: 042
     Dates: start: 19930201, end: 19930210
  4. DIFLUCAN [Concomitant]
     Indication: FUNGAL INFECTION
     Dosage: 100MG PER DAY
     Route: 042
     Dates: start: 19930201, end: 19930218
  5. FUNGIZONE [Concomitant]
     Indication: FUNGAL INFECTION
     Dosage: 5MG PER DAY
     Route: 042
     Dates: start: 19930219, end: 19930226
  6. MINOMYCIN [Concomitant]
     Indication: INFECTION
     Dosage: 20MG PER DAY
     Route: 042
     Dates: start: 19930306, end: 19930312

REACTIONS (6)
  - ABDOMINAL PAIN [None]
  - DIARRHOEA [None]
  - MELAENA [None]
  - MUCOUS MEMBRANE DISORDER [None]
  - PYREXIA [None]
  - VOMITING [None]
